FAERS Safety Report 23888371 (Version 2)
Quarter: 2024Q2

REPORT INFORMATION
  Report Type: Spontaneous
  Country: EG (occurrence: EG)
  Receive Date: 20240523
  Receipt Date: 20240524
  Transmission Date: 20240715
  Serious: Yes (Death, Hospitalization, Other)
  Sender: FDA-Public Use
  Company Number: EG-SA-SAC20240522001079

PATIENT
  Age: 85 Year
  Sex: Female
  Weight: 60 kg

DRUGS (8)
  1. ENOXAPARIN SODIUM [Suspect]
     Active Substance: ENOXAPARIN SODIUM
     Indication: Deep vein thrombosis
     Dosage: 40 MG, QD
     Route: 058
     Dates: start: 20240204, end: 20240207
  2. PLAVIX [Suspect]
     Active Substance: CLOPIDOGREL BISULFATE
     Indication: Ischaemic stroke
     Dosage: 75 MG, QD
     Route: 048
     Dates: start: 20240204, end: 20240207
  3. ASPIRIN [Suspect]
     Active Substance: ASPIRIN
     Indication: Ischaemic stroke
     Dosage: 75 MG, QD
     Route: 048
     Dates: start: 20240204, end: 20240207
  4. BISOPROLOL FUMARATE [Concomitant]
     Active Substance: BISOPROLOL FUMARATE
     Indication: Hypertension
     Dosage: 5 MG, QD
     Route: 048
     Dates: start: 20240204, end: 20240211
  5. CONTROLOC [Concomitant]
     Active Substance: PANTOPRAZOLE SODIUM
     Indication: Abdominal discomfort
     Dosage: 40 MG, QD
     Dates: start: 20240204, end: 20240211
  6. CITICOLINE [Concomitant]
     Active Substance: CITICOLINE
     Indication: Cerebrovascular accident
     Dosage: 100 ML, BID
     Dates: start: 20240204, end: 20240211
  7. ATORVASTATIN CALCIUM [Concomitant]
     Active Substance: ATORVASTATIN CALCIUM
     Indication: Lipids abnormal
     Dosage: 20 MG, QD
     Route: 048
     Dates: start: 20240204, end: 20240211
  8. UNICTAM [SULTAMICILLIN TOSILATE] [Concomitant]
     Indication: Pneumonia aspiration
     Dosage: 1500 MG, Q12H
     Route: 042
     Dates: start: 20240204, end: 20240208

REACTIONS (3)
  - Cerebral infarction [Fatal]
  - Haemorrhagic transformation stroke [Fatal]
  - Blood pressure abnormal [Unknown]

NARRATIVE: CASE EVENT DATE: 20240204
